FAERS Safety Report 7491992-5 (Version None)
Quarter: 2011Q2

REPORT INFORMATION
  Report Type: 
  Country: None (occurrence: None)
  Receive Date: 20110518
  Receipt Date: 20110518
  Transmission Date: 20111010
  Serious: No
  Sender: FDA-Public Use
  Company Number: None

PATIENT
  Age: 54 Year
  Sex: Female

DRUGS (1)
  1. AVONEX [Suspect]
     Indication: MULTIPLE SCLEROSIS
     Dosage: 30MCG QW IM
     Route: 030
     Dates: start: 20110413, end: 20110413

REACTIONS (6)
  - INCORRECT PRODUCT STORAGE [None]
  - CONDITION AGGRAVATED [None]
  - CHILLS [None]
  - NAUSEA [None]
  - PAIN [None]
  - PYREXIA [None]
